FAERS Safety Report 7605161-9 (Version None)
Quarter: 2011Q3

REPORT INFORMATION
  Report Type: 
  Country: None (occurrence: None)
  Receive Date: 20110713
  Receipt Date: 20110624
  Transmission Date: 20111222
  Serious: Yes (Hospitalization)
  Sender: FDA-Public Use
  Company Number: US-BAYER-2011-021711

PATIENT
  Age: 25 Year
  Sex: Female
  Weight: 63.492 kg

DRUGS (5)
  1. VIRAL VACCINES [Concomitant]
     Dosage: UNK
     Dates: start: 20090130
  2. LOESTRIN FE 1/20 [Concomitant]
     Dosage: UNK
     Dates: start: 20091230
  3. PERCOCET [Concomitant]
  4. NEXIUM [Concomitant]
     Indication: GASTROOESOPHAGEAL REFLUX DISEASE
     Dosage: UNK
     Dates: start: 20070101, end: 20100101
  5. YAZ [Suspect]
     Indication: PREMENSTRUAL SYNDROME
     Dosage: UNK
     Dates: start: 20080601, end: 20091201

REACTIONS (5)
  - INJURY [None]
  - CHOLELITHIASIS [None]
  - PAIN [None]
  - GALLBLADDER DISORDER [None]
  - CHOLECYSTITIS CHRONIC [None]
